FAERS Safety Report 9340447 (Version 1)
Quarter: 2013Q2

REPORT INFORMATION
  Report Type: Spontaneous
  Country: DK (occurrence: DE)
  Receive Date: 20130610
  Receipt Date: 20130610
  Transmission Date: 20140414
  Serious: Yes (Congenital Anomaly)
  Sender: FDA-Public Use
  Company Number: DE-FRI-1000045758

PATIENT
  Sex: Male
  Weight: 3.6 kg

DRUGS (2)
  1. ESCITALOPRAM [Suspect]
     Indication: DEPRESSION
     Route: 064
  2. OPIPRAMOL DURA [Suspect]
     Indication: DEPRESSION
     Dosage: 300 MG
     Route: 064

REACTIONS (2)
  - Cleft lip [Not Recovered/Not Resolved]
  - Foetal exposure during pregnancy [Not Recovered/Not Resolved]
